FAERS Safety Report 9069157 (Version 1)
Quarter: 2013Q1

REPORT INFORMATION
  Report Type: Spontaneous
  Country: US (occurrence: US)
  Receive Date: 20130131
  Receipt Date: 20130131
  Transmission Date: 20140127
  Serious: No
  Sender: FDA-Public Use
  Company Number: US-ABBOTT-12P-163-0998735-00

PATIENT
  Age: 30 Year
  Sex: Male
  Weight: 97.61 kg

DRUGS (3)
  1. HUMIRA [Suspect]
     Indication: HIDRADENITIS
     Dosage: STARTED WITH 3 PENS, AND WILL BE DOING 1 PEN EVERY 2 WEEKS.
     Route: 058
     Dates: start: 20121015, end: 20121015
  2. DOXYCYCLINE [Concomitant]
     Indication: PRODUCT USED FOR UNKNOWN INDICATION
  3. OXYCODONE [Concomitant]
     Indication: PAIN

REACTIONS (1)
  - Off label use [Not Recovered/Not Resolved]
